FAERS Safety Report 4469618-4 (Version None)
Quarter: 2004Q4

REPORT INFORMATION
  Report Type: 
  Country: None (occurrence: None)
  Receive Date: 20041008
  Receipt Date: 20040827
  Transmission Date: 20050328
  Serious: Yes (Hospitalization)
  Sender: FDA-Public Use
  Company Number: GB-ABBOTT-04P-167-0271848-00

PATIENT
  Age: 34 Year
  Sex: Male

DRUGS (5)
  1. VALPROATE SODIUM [Suspect]
     Indication: DRUG USE FOR UNKNOWN INDICATION
  2. CLOZAPINE [Suspect]
     Indication: OVERDOSE
     Route: 048
     Dates: start: 20000523, end: 20000523
  3. CLOZAPINE [Suspect]
     Indication: SCHIZOPHRENIA
     Route: 048
     Dates: start: 19960215
  4. CLOZAPINE [Suspect]
     Route: 048
     Dates: start: 20040720, end: 20040720
  5. ANTI-PARKINSON AGENTS [Concomitant]
     Indication: DRUG USE FOR UNKNOWN INDICATION

REACTIONS (9)
  - HEMIPARESIS [None]
  - HYPOAESTHESIA [None]
  - LIVER FUNCTION TEST ABNORMAL [None]
  - LOSS OF CONSCIOUSNESS [None]
  - NEUROLOGICAL EXAMINATION [None]
  - OVERDOSE [None]
  - PERONEAL NERVE PALSY [None]
  - RHABDOMYOLYSIS [None]
  - UNEVALUABLE EVENT [None]
